FAERS Safety Report 5737283-1 (Version None)
Quarter: 2008Q2

REPORT INFORMATION
  Report Type: 
  Country: None (occurrence: None)
  Receive Date: 20080512
  Receipt Date: 20080512
  Transmission Date: 20081010
  Serious: Yes (Hospitalization)
  Sender: FDA-Public Use
  Company Number: None

PATIENT
  Age: 67 Year
  Sex: Male
  Weight: 92.9874 kg

DRUGS (1)
  1. DIGITEK .125 MG ACTAVIS TOTOWA LLC [Suspect]
     Indication: CARDIAC DISORDER
     Dosage: 1 TAB DAILY PO
     Route: 048
     Dates: start: 19970701, end: 20071009

REACTIONS (2)
  - BRADYCARDIA [None]
  - PHARMACEUTICAL PRODUCT COMPLAINT [None]
